FAERS Safety Report 12681240 (Version 1)
Quarter: 2016Q3

REPORT INFORMATION
  Report Type: Spontaneous
  Country: KZ (occurrence: KZ)
  Receive Date: 20160824
  Receipt Date: 20160824
  Transmission Date: 20161109
  Serious: Yes (Life-Threatening, Hospitalization)
  Sender: FDA-Public Use
  Company Number: KZ-SEPTODONT-201603462

PATIENT
  Age: 15 Year
  Sex: Male
  Weight: 56 kg

DRUGS (1)
  1. SEPTANEST WITH ADRENALINEE 1:100 000 [Suspect]
     Active Substance: ARTICAINE HYDROCHLORIDE\EPINEPHRINE BITARTRATE
     Indication: LOCAL ANAESTHESIA
     Dosage: SINGLE DOSE LOCALLY INJECTION IN THE CANAL INTO THE PULP
     Route: 004
     Dates: start: 20160607, end: 20160607

REACTIONS (14)
  - Somnolence [Recovering/Resolving]
  - Nausea [Recovering/Resolving]
  - Nystagmus [Recovering/Resolving]
  - Intentional product misuse [Unknown]
  - Vision blurred [Recovering/Resolving]
  - Muscular weakness [Recovering/Resolving]
  - Asthenia [Recovering/Resolving]
  - Headache [Recovering/Resolving]
  - Dizziness [Recovering/Resolving]
  - Gait disturbance [Recovering/Resolving]
  - Memory impairment [Recovering/Resolving]
  - Intention tremor [Unknown]
  - Haemorrhagic stroke [Recovering/Resolving]
  - Subarachnoid haemorrhage [Recovering/Resolving]

NARRATIVE: CASE EVENT DATE: 20160607
